FAERS Safety Report 12845484 (Version 1)
Quarter: 2016Q4

REPORT INFORMATION
  Report Type: Spontaneous
  Country: US (occurrence: US)
  Receive Date: 20161013
  Receipt Date: 20161013
  Transmission Date: 20170207
  Serious: No
  Sender: FDA-Public Use
  Company Number: US-JAZZ-2016-US-013667

PATIENT
  Sex: Female

DRUGS (25)
  1. FISH OIL [Concomitant]
     Active Substance: FISH OIL
  2. WELLBUTRIN [Concomitant]
     Active Substance: BUPROPION HYDROCHLORIDE
  3. XANAX [Concomitant]
     Active Substance: ALPRAZOLAM
  4. CHLOR-TRIMETON [Concomitant]
     Active Substance: CHLORPHENIRAMINE MALEATE
  5. ZYRTEC [Concomitant]
     Active Substance: CETIRIZINE HYDROCHLORIDE
  6. ADVIL CONGESTION RELIEF [Concomitant]
     Active Substance: IBUPROFEN\PHENYLEPHRINE HYDROCHLORIDE
  7. METROGEL [Concomitant]
     Active Substance: METRONIDAZOLE
  8. SUDAFED [Concomitant]
     Active Substance: PSEUDOEPHEDRINE HYDROCHLORIDE
  9. XYREM [Suspect]
     Active Substance: SODIUM OXYBATE
     Indication: NARCOLEPSY
     Dosage: 2.25 G, BID
     Route: 048
     Dates: start: 201602, end: 201602
  10. XYREM [Suspect]
     Active Substance: SODIUM OXYBATE
     Dosage: 3.25 G, BID
     Route: 048
     Dates: start: 2016
  11. NASACORT AQ [Concomitant]
     Active Substance: TRIAMCINOLONE ACETONIDE
  12. PROBIOTIC [Concomitant]
     Active Substance: PROBIOTICS NOS
  13. VITAMIN D [Concomitant]
     Active Substance: CHOLECALCIFEROL
  14. ZOVIA [Concomitant]
     Active Substance: ETHINYL ESTRADIOL\ETHYNODIOL DIACETATE
  15. GABAPENTIN. [Concomitant]
     Active Substance: GABAPENTIN
  16. IBUPROFEN. [Concomitant]
     Active Substance: IBUPROFEN
  17. RITALIN [Concomitant]
     Active Substance: METHYLPHENIDATE HYDROCHLORIDE
  18. TOVIAZ [Concomitant]
     Active Substance: FESOTERODINE FUMARATE
  19. VALTREX [Concomitant]
     Active Substance: VALACYCLOVIR HYDROCHLORIDE
  20. MELATONIN [Concomitant]
     Active Substance: MELATONIN
  21. XYREM [Suspect]
     Active Substance: SODIUM OXYBATE
     Indication: CATAPLEXY
     Dosage: DOSE ADJUSTMENTS
     Route: 048
     Dates: start: 201602, end: 2016
  22. CLONAZEPAM. [Concomitant]
     Active Substance: CLONAZEPAM
  23. ALEVE [Concomitant]
     Active Substance: NAPROXEN SODIUM
  24. SUDAFED PE CONGESTION [Concomitant]
     Active Substance: PHENYLEPHRINE HYDROCHLORIDE
  25. METRONIDAZOLE. [Concomitant]
     Active Substance: METRONIDAZOLE

REACTIONS (1)
  - Cystitis [Unknown]
